FAERS Safety Report 15659444 (Version 2)
Quarter: 2019Q1

REPORT INFORMATION
  Report Type: Report from Study
  Country: CO (occurrence: CO)
  Receive Date: 20181127
  Receipt Date: 20190328
  Transmission Date: 20190417
  Serious: Yes (Hospitalization)
  Sender: FDA-Public Use
  Company Number: CO-ASTELLAS-2018US050535

PATIENT
  Age: 35 Year
  Sex: Male

DRUGS (1)
  1. TACROLIMUS. [Suspect]
     Active Substance: TACROLIMUS
     Indication: RENAL TRANSPLANT
     Dosage: 8 MG, ONCE DAILY (1 CAPSULE OF 5 MG, 3 CAPSULES OF 1 MG)
     Route: 048
     Dates: start: 20140706

REACTIONS (7)
  - Blood creatinine abnormal [Not Recovered/Not Resolved]
  - Pain [Recovering/Resolving]
  - Gastrointestinal oedema [Unknown]
  - Chronic allograft nephropathy [Not Recovered/Not Resolved]
  - Haemorrhoids [Not Recovered/Not Resolved]
  - Epistaxis [Not Recovered/Not Resolved]
  - Colitis [Not Recovered/Not Resolved]

NARRATIVE: CASE EVENT DATE: 201810
